FAERS Safety Report 10100414 (Version 1)
Quarter: 2014Q2

REPORT INFORMATION
  Report Type: Spontaneous
  Country: US (occurrence: US)
  Receive Date: 20140423
  Receipt Date: 20140423
  Transmission Date: 20141212
  Serious: No
  Sender: FDA-Public Use
  Company Number: US-009507513-1404USA011886

PATIENT
  Sex: Female

DRUGS (1)
  1. PEGINTRON [Suspect]
     Dosage: 120 MICROGRAM, UNK

REACTIONS (1)
  - Injection site pain [Recovered/Resolved]
